FAERS Safety Report 6310896-4 (Version None)
Quarter: 2009Q3

REPORT INFORMATION
  Report Type: 
  Country: None (occurrence: None)
  Receive Date: 20090812
  Receipt Date: 20090803
  Transmission Date: 20100115
  Serious: Yes (Disabling)
  Sender: FDA-Public Use
  Company Number: GXKR2009GB08771

PATIENT
  Age: 38 Year
  Sex: Female
  Weight: 53 kg

DRUGS (6)
  1. CLARITHROMYCIN [Suspect]
     Indication: LOWER RESPIRATORY TRACT INFECTION
     Dosage: 500 MG, BID, ORAL
     Route: 048
     Dates: start: 20090720, end: 20090721
  2. AMOXICILLIN [Concomitant]
  3. CALCIPOTRIOL (CALCIPOTRIOL) [Concomitant]
  4. CEPHALEXIN [Concomitant]
  5. MICRONOR [Concomitant]
  6. SALBUTAMOL (SALBUTAMOL) [Concomitant]

REACTIONS (3)
  - DYSKINESIA [None]
  - PALPITATIONS [None]
  - PARAESTHESIA [None]
